FAERS Safety Report 11316379 (Version 2)
Quarter: 2015Q4

REPORT INFORMATION
  Report Type: Spontaneous
  Country: US (occurrence: US)
  Receive Date: 20150728
  Receipt Date: 20151009
  Transmission Date: 20160304
  Serious: Yes (Life-Threatening, Hospitalization, Disabling)
  Sender: FDA-Public Use
  Company Number: US-BAYER-2015-387135

PATIENT
  Age: 24 Year
  Sex: Female
  Weight: 93.88 kg

DRUGS (1)
  1. MIRENA [Suspect]
     Active Substance: LEVONORGESTREL
     Indication: CONTRACEPTION
     Dosage: 20 MCG/24HR, CONT
     Route: 015
     Dates: start: 20101216, end: 20130612

REACTIONS (14)
  - Injury [Recovered/Resolved]
  - Device breakage [None]
  - Depression [None]
  - Pelvic pain [Recovered/Resolved]
  - Complication of device removal [None]
  - Anxiety [None]
  - Emotional distress [None]
  - General physical health deterioration [Recovered/Resolved]
  - Scar [None]
  - Device issue [Recovered/Resolved]
  - Balance disorder [Recovered/Resolved]
  - Infertility female [None]
  - Embedded device [Recovered/Resolved]
  - Anhedonia [None]

NARRATIVE: CASE EVENT DATE: 20130603
